FAERS Safety Report 8771179 (Version 4)
Quarter: 2012Q4

REPORT INFORMATION
  Report Type: 
  Country: US (occurrence: US)
  Receive Date: 20120906
  Receipt Date: 20121207
  Transmission Date: 20130627
  Serious: Yes (Hospitalization, Other)
  Sender: FDA-Public Use
  Company Number: US-PFIZER INC-2012215227

PATIENT
  Age: 85 Year
  Sex: Male

DRUGS (6)
  1. LYRICA [Suspect]
     Indication: NEUROPATHY PERIPHERAL
     Dosage: 225 mg, 2x/day
     Route: 048
     Dates: start: 2010, end: 20120816
  2. LYRICA [Suspect]
     Dosage: 225 mg, 1x/day
     Route: 048
     Dates: start: 20120817, end: 20120824
  3. LYRICA [Suspect]
     Dosage: 225 mg, 2x/day
     Route: 048
     Dates: start: 2012, end: 20120918
  4. CARDIZEM [Concomitant]
     Dosage: UNK
  5. COUMADIN [Concomitant]
     Dosage: UNK
  6. ZOCOR [Concomitant]
     Dosage: UNK

REACTIONS (24)
  - Urosepsis [Recovered/Resolved]
  - Urinary tract infection [Recovered/Resolved]
  - Bladder obstruction [Recovered/Resolved]
  - Renal failure [Recovered/Resolved]
  - Bacterial infection [Recovered/Resolved]
  - Dehydration [Recovered/Resolved]
  - Sepsis [Recovered/Resolved]
  - Delirium tremens [Recovered/Resolved]
  - Urinary retention [Unknown]
  - Withdrawal syndrome [Recovered/Resolved]
  - Tremor [Recovered/Resolved]
  - Agitation [Recovered/Resolved]
  - Confusional state [Recovered/Resolved]
  - Headache [Recovered/Resolved]
  - Nausea [Recovered/Resolved]
  - Diarrhoea [Recovered/Resolved]
  - Anxiety [Recovered/Resolved]
  - Hyperhidrosis [Recovered/Resolved]
  - Nervousness [Recovered/Resolved]
  - Malaise [Recovered/Resolved]
  - Insomnia [Recovered/Resolved]
  - Contusion [Recovered/Resolved]
  - Hyperreflexia [Recovered/Resolved]
  - Irritability [Recovered/Resolved]
